FAERS Safety Report 16457500 (Version 1)
Quarter: 2019Q2

REPORT INFORMATION
  Report Type: Spontaneous
  Country: US (occurrence: US)
  Receive Date: 20190510
  Receipt Date: 20190510
  Transmission Date: 20190711
  Serious: No
  Sender: FDA-Public Use
  Company Number: None

PATIENT
  Age: 49 Year
  Sex: Male

DRUGS (1)
  1. GLEEVEC [Suspect]
     Active Substance: IMATINIB MESYLATE
     Dates: start: 20190110, end: 20190510

REACTIONS (4)
  - Abdominal discomfort [None]
  - Decreased appetite [None]
  - Nausea [None]
  - Disease progression [None]

NARRATIVE: CASE EVENT DATE: 20190510
